FAERS Safety Report 24121501 (Version 1)
Quarter: 2024Q3

REPORT INFORMATION
  Report Type: Report from Study
  Country: US (occurrence: US)
  Receive Date: 20240722
  Receipt Date: 20240722
  Transmission Date: 20241017
  Serious: Yes (Other)
  Sender: ABBVIE
  Company Number: US-ABBVIE-5844577

PATIENT
  Sex: Male

DRUGS (1)
  1. HUMIRA [Suspect]
     Active Substance: ADALIMUMAB
     Indication: Crohn^s disease
     Dosage: CITRATE FREE
     Route: 058
     Dates: start: 20220331

REACTIONS (4)
  - Large intestine polyp [Recovering/Resolving]
  - Prostate cancer recurrent [Not Recovered/Not Resolved]
  - Crohn^s disease [Recovering/Resolving]
  - Gastrointestinal tract irritation [Recovering/Resolving]
